FAERS Safety Report 8263202-2 (Version None)
Quarter: 2012Q2

REPORT INFORMATION
  Report Type: 
  Country: None (occurrence: None)
  Receive Date: 20120405
  Receipt Date: 20120402
  Transmission Date: 20120825
  Serious: No
  Sender: FDA-Public Use
  Company Number: US-PFIZER INC-2012083427

PATIENT
  Sex: Female
  Weight: 46.712 kg

DRUGS (4)
  1. SKELAXIN [Suspect]
     Dosage: HALF A TABLET OF 800 MG, 1X/DAY
     Route: 048
     Dates: start: 20120329, end: 20120331
  2. IBUPROFEN [Concomitant]
     Dosage: 800 MG, 3X/DAY
  3. SKELAXIN [Suspect]
     Indication: PERIARTHRITIS
     Dosage: 800 MG, 1X/DAY
     Route: 048
  4. FLEXERIL [Concomitant]
     Indication: PERIARTHRITIS
     Dosage: UNK

REACTIONS (2)
  - RASH [None]
  - FEELING ABNORMAL [None]
